FAERS Safety Report 5017336-6 (Version None)
Quarter: 2006Q2

REPORT INFORMATION
  Report Type: 
  Country: None (occurrence: None)
  Receive Date: 20060414
  Receipt Date: 20060228
  Transmission Date: 20061013
  Serious: No
  Sender: FDA-Public Use
  Company Number: 2006SP000992

PATIENT
  Age: 48 Year
  Sex: Female
  Weight: 77.1115 kg

DRUGS (7)
  1. LUNESTA [Suspect]
     Indication: INSOMNIA
     Dosage: SEE IMAGE
     Route: 048
     Dates: start: 20060223, end: 20060226
  2. LUNESTA [Suspect]
     Indication: INSOMNIA
     Dosage: SEE IMAGE
     Route: 048
     Dates: start: 20060227
  3. TOPAMAX [Concomitant]
  4. LEXAPRO [Concomitant]
  5. LYRICA [Concomitant]
  6. REQUIP [Concomitant]
  7. TRAZODONE HCL [Concomitant]

REACTIONS (2)
  - DYSGEUSIA [None]
  - INSOMNIA [None]
